FAERS Safety Report 5154016-0 (Version None)
Quarter: 2006Q4

REPORT INFORMATION
  Report Type: 
  Country: None (occurrence: None)
  Receive Date: 20061120
  Receipt Date: 20061107
  Transmission Date: 20070319
  Serious: Yes (Other)
  Sender: FDA-Public Use
  Company Number: GB-GLAXOSMITHKLINE-B0445939A

PATIENT
  Age: 42 Year
  Sex: Female

DRUGS (2)
  1. FLIXOTIDE [Suspect]
     Indication: ASTHMA
     Dosage: 100MCG UNKNOWN
     Route: 055
  2. BECLAZONE EASI BREATHE [Concomitant]

REACTIONS (1)
  - ASTHMA [None]
